FAERS Safety Report 10100214 (Version 3)
Quarter: 2014Q2

REPORT INFORMATION
  Report Type: Report from Study
  Country: DE (occurrence: DE)
  Receive Date: 20140423
  Receipt Date: 20140501
  Transmission Date: 20141212
  Serious: Yes (Other)
  Sender: FDA-Public Use
  Company Number: PHHY2013DE090666

PATIENT
  Sex: Female
  Weight: 64 kg

DRUGS (3)
  1. AFINITOR [Suspect]
     Indication: BREAST CANCER METASTATIC
     Dosage: 10 MG, DAILY
     Route: 048
     Dates: start: 20130521, end: 20131024
  2. EXEMESTANE [Concomitant]
     Indication: BREAST CANCER METASTATIC
     Dosage: 25 MG, DAILY
     Route: 048
     Dates: start: 20130521, end: 20131024
  3. BISPHOSPHONATES [Concomitant]
     Indication: PROPHYLAXIS

REACTIONS (5)
  - Rectal cancer [Recovered/Resolved]
  - Lymphangiosis carcinomatosa [Not Recovered/Not Resolved]
  - Dyspnoea [Recovered/Resolved]
  - Infection [Recovered/Resolved]
  - Decreased appetite [Unknown]
